FAERS Safety Report 12971224 (Version 1)
Quarter: 2016Q4

REPORT INFORMATION
  Report Type: Spontaneous
  Country: US (occurrence: US)
  Receive Date: 20161123
  Receipt Date: 20161123
  Transmission Date: 20170207
  Serious: Yes (Other)
  Sender: FDA-Public Use
  Company Number: US-TEIKOKU PHARMA USA-TPU2016-00792

PATIENT
  Sex: Female
  Weight: 63.56 kg

DRUGS (1)
  1. LIDOCAINE PATCH [Suspect]
     Active Substance: LIDOCAINE
     Indication: BONE PAIN
     Dosage: 1 PATCH ON BACK EVERY 12 HOURS ON AND OFF FOR 12 HOURS, SOMETIMES CUT PATCH IN HALF AND USED 1/2 PAT
     Route: 061
     Dates: start: 1980

REACTIONS (11)
  - Vomiting [Unknown]
  - Accidental exposure to product [Recovered/Resolved]
  - Dry mouth [Unknown]
  - Therapeutic response unexpected [Unknown]
  - Bladder operation [Unknown]
  - Oedema peripheral [Recovered/Resolved]
  - Retching [Unknown]
  - Muscle injury [Unknown]
  - Urinary tract infection [Unknown]
  - Bladder prolapse [Unknown]
  - Incorrect drug administration duration [Recovered/Resolved]

NARRATIVE: CASE EVENT DATE: 2015
